FAERS Safety Report 10786053 (Version 2)
Quarter: 2015Q1

REPORT INFORMATION
  Report Type: Spontaneous
  Country: US (occurrence: US)
  Receive Date: 20150211
  Receipt Date: 20150325
  Transmission Date: 20150721
  Serious: No
  Sender: FDA-Public Use
  Company Number: US-ASTRAZENECA-2015SE11183

PATIENT
  Sex: Female
  Weight: 80.7 kg

DRUGS (2)
  1. PROVENTIL [Concomitant]
     Active Substance: ALBUTEROL
     Indication: DYSPNOEA
  2. SYMBICORT [Suspect]
     Active Substance: BUDESONIDE\FORMOTEROL FUMARATE DIHYDRATE
     Indication: CHRONIC OBSTRUCTIVE PULMONARY DISEASE
     Dosage: 160/4.5 MG, 2 PUFFS, TWO TIMES A DAY
     Route: 055
     Dates: start: 201412

REACTIONS (4)
  - Impaired work ability [Unknown]
  - Device misuse [Unknown]
  - Type 2 diabetes mellitus [Unknown]
  - Dyspnoea exertional [Unknown]
